FAERS Safety Report 10029005 (Version 1)
Quarter: 2014Q1

REPORT INFORMATION
  Report Type: Spontaneous
  Country: DK (occurrence: DK)
  Receive Date: 20140321
  Receipt Date: 20140321
  Transmission Date: 20141002
  Serious: Yes (Hospitalization)
  Sender: FDA-Public Use
  Company Number: DK-ACTAVIS-2013-25149

PATIENT
  Sex: Female

DRUGS (3)
  1. METFORMIN ACTAVIS [Suspect]
     Route: 050
  2. OMEPRAZOL ACTAVIS [Suspect]
     Indication: PRODUCT USED FOR UNKNOWN INDICATION
     Route: 050
  3. AMLODIPIN ACTAVIS [Suspect]
     Indication: BLOOD PRESSURE
     Route: 050

REACTIONS (2)
  - Nausea [Unknown]
  - Abdominal discomfort [Unknown]
